FAERS Safety Report 9155906 (Version 1)
Quarter: 2013Q1

REPORT INFORMATION
  Report Type: Spontaneous
  Country: CN (occurrence: CN)
  Receive Date: 20130311
  Receipt Date: 20130311
  Transmission Date: 20140127
  Serious: Yes (Hospitalization)
  Sender: FDA-Public Use
  Company Number: PHHY2012CN128036

PATIENT
  Age: 35 Year
  Sex: Male
  Weight: 74 kg

DRUGS (2)
  1. VOTALIN [Suspect]
     Indication: ARTHROPATHY
     Dosage: 1 DF, QD
     Route: 048
     Dates: start: 20110719, end: 20110726
  2. COLCHICINE [Suspect]
     Indication: ARTHRALGIA
     Dosage: UNK UKN, UNK
     Dates: start: 20110719, end: 20110830

REACTIONS (8)
  - Toxic skin eruption [Recovering/Resolving]
  - Rash [Recovering/Resolving]
  - Asthenia [Recovering/Resolving]
  - Pyrexia [Recovering/Resolving]
  - Chest discomfort [Unknown]
  - Dyspnoea [Recovering/Resolving]
  - Dizziness [Recovering/Resolving]
  - Headache [Recovering/Resolving]
